FAERS Safety Report 5940433-5 (Version None)
Quarter: 2008Q4

REPORT INFORMATION
  Report Type: 
  Country: None (occurrence: None)
  Receive Date: 20081030
  Receipt Date: 20081017
  Transmission Date: 20090506
  Serious: Yes (Death)
  Sender: FDA-Public Use
  Company Number: 2008AL011448

PATIENT
  Age: 66 Year
  Sex: Female

DRUGS (14)
  1. TRAMADOL HCL [Suspect]
     Indication: DRUG USE FOR UNKNOWN INDICATION
     Dosage: 50 MG; QD; PO
     Route: 048
     Dates: start: 20050101, end: 20080308
  2. MIRTAZAPINE [Suspect]
  3. ZOPICLONE [Concomitant]
  4. SIMVASTATIN [Concomitant]
  5. IMPUGAN [Concomitant]
  6. PULMICORT [Concomitant]
  7. IMIGRAN /SCH/ [Concomitant]
  8. ALVEDON [Concomitant]
  9. SPIRIVA [Concomitant]
  10. ACETAMINOPHEN W/ CODEINE [Concomitant]
  11. MUCOMYST [Concomitant]
  12. BAMBEC [Concomitant]
  13. ESTRIOL [Concomitant]
  14. VENTOLIN DISKUS [Concomitant]

REACTIONS (2)
  - DRUG TOXICITY [None]
  - SUDDEN DEATH [None]
